FAERS Safety Report 8456995-2 (Version None)
Quarter: 2012Q2

REPORT INFORMATION
  Report Type: 
  Country: None (occurrence: None)
  Receive Date: 20120621
  Receipt Date: 20120612
  Transmission Date: 20120825
  Serious: Yes (Hospitalization)
  Sender: FDA-Public Use
  Company Number: IT-ASTRAZENECA-2012SE39353

PATIENT
  Age: 33367 Day
  Sex: Male

DRUGS (10)
  1. EUGLOCON M [Concomitant]
     Dosage: 400 MG + 2.5 MG COATED TABLETS, 1 DF AT UNKNOWN FREQUENCY
     Route: 048
  2. ZESTORETIC [Concomitant]
     Dosage: 20 MG + 12,5 MG TABLETS , 1 DF AT UNKNOWN FREQUENCY
     Route: 048
  3. MITTOVAL [Concomitant]
     Route: 048
  4. SEROQUEL [Suspect]
     Indication: PSYCHOMOTOR HYPERACTIVITY
     Route: 048
     Dates: start: 20120511, end: 20120514
  5. PROMAZINE HYDROCHLORIDE [Suspect]
     Indication: PSYCHOMOTOR HYPERACTIVITY
     Route: 048
     Dates: start: 20120511, end: 20120514
  6. ADALAT [Concomitant]
     Route: 048
  7. METFORMINA BLUEFISH [Concomitant]
     Route: 048
  8. MAGNESIUM HYDROXIDE TAB [Concomitant]
     Route: 048
  9. ATORVASTATIN CALCIUM [Concomitant]
     Route: 048
  10. BISOPROLOL FUMARATE [Concomitant]
     Route: 048

REACTIONS (2)
  - APNOEA [None]
  - ACCIDENTAL OVERDOSE [None]
